FAERS Safety Report 21768378 (Version 2)
Quarter: 2023Q1

REPORT INFORMATION
  Report Type: Spontaneous
  Country: CA (occurrence: CA)
  Receive Date: 20221222
  Receipt Date: 20230103
  Transmission Date: 20230417
  Serious: Yes (Death)
  Sender: FDA-Public Use
  Company Number: CA-BAYER-2022P031058

PATIENT
  Age: 66 Year

DRUGS (1)
  1. STIVARGA [Suspect]
     Active Substance: REGORAFENIB
     Indication: Colorectal cancer metastatic
     Dosage: 80 MG, QD X 1 WEEK
     Route: 048
     Dates: start: 20220714

REACTIONS (4)
  - Colorectal cancer metastatic [Fatal]
  - Multiple organ dysfunction syndrome [Fatal]
  - Physical deconditioning [None]
  - Off label use [None]
